FAERS Safety Report 17976049 (Version 1)
Quarter: 2020Q3

REPORT INFORMATION
  Report Type: Spontaneous
  Country: US (occurrence: US)
  Receive Date: 20200702
  Receipt Date: 20200702
  Transmission Date: 20201103
  Serious: Yes (Other)
  Sender: FDA-Public Use
  Company Number: US-ENDO PHARMACEUTICALS INC-2020-004528

PATIENT
  Age: 21 Year
  Sex: Male

DRUGS (1)
  1. APLISOL [Suspect]
     Active Substance: TUBERCULIN PURIFIED PROTEIN DERIVATIVE
     Indication: TUBERCULIN TEST
     Dosage: 1 DF, SINGLE
     Route: 065
     Dates: start: 202002, end: 202002

REACTIONS (10)
  - Impaired driving ability [Recovering/Resolving]
  - Heart rate increased [Recovering/Resolving]
  - Mental status changes [Recovering/Resolving]
  - Sensory disturbance [Recovering/Resolving]
  - Dizziness [Recovering/Resolving]
  - Impaired work ability [Recovering/Resolving]
  - Seizure [Recovering/Resolving]
  - Syncope [Recovering/Resolving]
  - Anxiety [Recovering/Resolving]
  - Fear [Recovering/Resolving]

NARRATIVE: CASE EVENT DATE: 202002
